FAERS Safety Report 10367313 (Version 2)
Quarter: 2014Q4

REPORT INFORMATION
  Report Type: Spontaneous
  Country: US (occurrence: US)
  Receive Date: 20140807
  Receipt Date: 20141009
  Transmission Date: 20150528
  Serious: Yes (Other)
  Sender: FDA-Public Use
  Company Number: US-009507513-1408USA000660

PATIENT
  Age: 48 Year
  Sex: Female
  Weight: 65.76 kg

DRUGS (1)
  1. NEXPLANON [Suspect]
     Active Substance: ETONOGESTREL
     Indication: CONTRACEPTION
     Dosage: UNK
     Route: 059
     Dates: start: 20140617, end: 20141007

REACTIONS (5)
  - Angioedema [Recovered/Resolved]
  - Injection site urticaria [Recovered/Resolved]
  - Implant site erythema [Recovered/Resolved]
  - Hypersensitivity [Recovered/Resolved]
  - Implant site inflammation [Recovered/Resolved]

NARRATIVE: CASE EVENT DATE: 20140619
